FAERS Safety Report 4643762-0 (Version None)
Quarter: 2005Q2

REPORT INFORMATION
  Report Type: 
  Country: None (occurrence: None)
  Receive Date: 20050422
  Receipt Date: 20050422
  Transmission Date: 20051028
  Serious: Yes (Other)
  Sender: FDA-Public Use
  Company Number: None

PATIENT
  Age: 85 Year
  Sex: Female
  Weight: 47.2 kg

DRUGS (8)
  1. OXYBUTYNIN CHLORIDE [Suspect]
  2. OXYBUTYNIN CHLORIDE [Concomitant]
  3. PHENAZOPYRIDINE HCL TAB [Concomitant]
  4. OMEPRAZOLE [Concomitant]
  5. HYDROXYCHLOROQUINE SULFATE [Concomitant]
  6. HYDROXYPROPYL ME CELLULOSE [Concomitant]
  7. FLUNISOLIDE [Concomitant]
  8. FUROSEMIDE [Concomitant]

REACTIONS (2)
  - CONSTIPATION [None]
  - DIZZINESS [None]
